FAERS Safety Report 19216017 (Version 1)
Quarter: 2021Q2

REPORT INFORMATION
  Report Type: Spontaneous
  Country: CA (occurrence: CA)
  Receive Date: 20210505
  Receipt Date: 20210505
  Transmission Date: 20210717
  Serious: Yes (Death, Hospitalization, Other)
  Sender: FDA-Public Use
  Company Number: CA-BAYER-2020-198838

PATIENT
  Age: 73 Year
  Sex: Male

DRUGS (9)
  1. STIVARGA [Suspect]
     Active Substance: REGORAFENIB
     Indication: COLORECTAL CANCER METASTATIC
     Dosage: UNK
     Route: 065
  2. DIAZEPAM. [Concomitant]
     Active Substance: DIAZEPAM
  3. AVASTIN [Concomitant]
     Active Substance: BEVACIZUMAB
  4. ATENOLOL. [Concomitant]
     Active Substance: ATENOLOL
  5. STIVARGA [Suspect]
     Active Substance: REGORAFENIB
     Indication: COLORECTAL CANCER METASTATIC
     Dosage: 160 MG, 1X/DAY
     Route: 048
  6. ASPIRIN [ACETYLSALICYLIC ACID] [Concomitant]
     Active Substance: ASPIRIN
  7. OXYCODONE [Suspect]
     Active Substance: OXYCODONE
     Route: 065
  8. PROCET [CETIRIZINE HYDROCHLORIDE] [Concomitant]
     Active Substance: CETIRIZINE HYDROCHLORIDE
  9. ATIVAN [Suspect]
     Active Substance: LORAZEPAM
     Route: 065

REACTIONS (10)
  - Asthenia [Fatal]
  - Confusional state [Fatal]
  - Pain [Fatal]
  - Amnesia [Fatal]
  - Muscular weakness [Fatal]
  - Gait disturbance [Fatal]
  - Insomnia [Fatal]
  - Colorectal cancer metastatic [Fatal]
  - Fall [Fatal]
  - Gait inability [Fatal]
